FAERS Safety Report 7986909-0 (Version None)
Quarter: 2011Q4

REPORT INFORMATION
  Report Type: 
  Country: None (occurrence: None)
  Receive Date: 20111216
  Receipt Date: 20110307
  Transmission Date: 20120403
  Serious: No
  Sender: FDA-Public Use
  Company Number: US-BRISTOL-MYERS SQUIBB COMPANY-15592868

PATIENT
  Age: 46 Year
  Sex: Female
  Weight: 104 kg

DRUGS (1)
  1. ABILIFY [Suspect]
     Dates: start: 20110213

REACTIONS (10)
  - SWOLLEN TONGUE [None]
  - DYSKINESIA [None]
  - MYALGIA [None]
  - FATIGUE [None]
  - TRISMUS [None]
  - RESTLESSNESS [None]
  - PAIN IN EXTREMITY [None]
  - NERVOUSNESS [None]
  - INSOMNIA [None]
  - VISION BLURRED [None]
